FAERS Safety Report 5874431-7 (Version None)
Quarter: 2008Q3

REPORT INFORMATION
  Report Type: 
  Country: None (occurrence: None)
  Receive Date: 20080908
  Receipt Date: 20080827
  Transmission Date: 20090109
  Serious: Yes (Other)
  Sender: FDA-Public Use
  Company Number: ZA-PFIZER INC-2008060437

PATIENT
  Sex: Male
  Weight: 110 kg

DRUGS (6)
  1. SUTENT [Suspect]
     Route: 048
     Dates: start: 20080604
  2. ADALAT [Concomitant]
     Route: 048
  3. MORPHINE [Concomitant]
     Route: 048
     Dates: start: 20080501
  4. RIDAQ [Concomitant]
     Route: 048
  5. PERINDOPRIL ERBUMINE/INDAPAMIDE HEMIHYDRATE [Concomitant]
     Route: 048
  6. CIMETIDINE [Concomitant]
     Route: 048

REACTIONS (1)
  - LIBIDO INCREASED [None]
